FAERS Safety Report 4514801-2 (Version None)
Quarter: 2004Q4

REPORT INFORMATION
  Report Type: 
  Country: None (occurrence: None)
  Receive Date: 20041129
  Receipt Date: 20041129
  Transmission Date: 20050328
  Serious: Yes (Other)
  Sender: FDA-Public Use
  Company Number: None

PATIENT
  Age: 76 Year
  Sex: Female

DRUGS (3)
  1. GLYCOLAX [Suspect]
     Indication: CONSTIPATION
     Dosage: QD THEN BID
  2. GLYCOLAX [Suspect]
     Indication: NAUSEA
     Dosage: QD THEN BID
  3. GLYCOLAX [Suspect]
     Indication: VOMITING
     Dosage: QD THEN BID

REACTIONS (1)
  - DRUG INEFFECTIVE [None]
